FAERS Safety Report 5492164-6 (Version None)
Quarter: 2007Q4

REPORT INFORMATION
  Report Type: 
  Country: None (occurrence: None)
  Receive Date: 20071018
  Receipt Date: 20071002
  Transmission Date: 20080405
  Serious: Yes (Other)
  Sender: FDA-Public Use
  Company Number: 2007S1009359

PATIENT
  Age: 24 Year
  Sex: Female
  Weight: 68.0396 kg

DRUGS (3)
  1. AMNESTEEM [Suspect]
     Dosage: ; ORAL, ; ORAL
     Route: 048
     Dates: start: 20070701, end: 20070818
  2. AMNESTEEM [Suspect]
     Dosage: ; ORAL, ; ORAL
     Route: 048
     Dates: start: 20070214
  3. AMNESTEEM [Suspect]
     Dosage: ; ORAL, ; ORAL
     Route: 048

REACTIONS (4)
  - ABORTION INDUCED [None]
  - DRUG EXPOSURE DURING PREGNANCY [None]
  - TRANSMISSION OF DRUG VIA SEMEN [None]
  - UNINTENDED PREGNANCY [None]
